FAERS Safety Report 5514082-7 (Version None)
Quarter: 2007Q4

REPORT INFORMATION
  Report Type: 
  Country: None (occurrence: None)
  Receive Date: 20071113
  Receipt Date: 20071031
  Transmission Date: 20080405
  Serious: Yes (Hospitalization)
  Sender: FDA-Public Use
  Company Number: GB-AMGEN-US251933

PATIENT
  Sex: Female
  Weight: 94 kg

DRUGS (7)
  1. ENBREL [Suspect]
     Indication: RHEUMATOID ARTHRITIS
     Route: 058
     Dates: start: 20021028
  2. ALENDRONATE SODIUM [Concomitant]
     Dosage: UNKNOWN
  3. ROFECOXIB [Concomitant]
     Dosage: UNKNOWN
  4. ATENOLOL [Concomitant]
     Dosage: UNKNOWN
  5. FUROSEMIDE [Concomitant]
     Dosage: UNKNOWN
  6. PREDNISOLONE [Concomitant]
     Dosage: UNKNOWN
  7. AMLODIPINE [Concomitant]
     Dosage: UNKNOWN

REACTIONS (4)
  - CONTUSION [None]
  - DRUG DOSE OMISSION [None]
  - FALL [None]
  - LOWER RESPIRATORY TRACT INFECTION [None]
